FAERS Safety Report 7787953-9 (Version None)
Quarter: 2011Q3

REPORT INFORMATION
  Report Type: 
  Country: None (occurrence: None)
  Receive Date: 20110930
  Receipt Date: 20110923
  Transmission Date: 20111222
  Serious: No
  Sender: FDA-Public Use
  Company Number: US-BIOGENIDEC-2011BI036734

PATIENT
  Age: 61 Year
  Sex: Female

DRUGS (3)
  1. AVONEX [Concomitant]
     Indication: MULTIPLE SCLEROSIS
     Route: 030
     Dates: start: 19990201
  2. TYSABRI [Suspect]
     Indication: MULTIPLE SCLEROSIS
     Route: 042
     Dates: start: 20110605, end: 20110716
  3. TYSABRI [Suspect]
     Route: 042
     Dates: start: 20071001, end: 20081017

REACTIONS (4)
  - MULTIPLE SCLEROSIS [None]
  - ASTHENIA [None]
  - MOBILITY DECREASED [None]
  - ABASIA [None]
